FAERS Safety Report 7374527-7 (Version None)
Quarter: 2011Q1

REPORT INFORMATION
  Report Type: 
  Country: None (occurrence: None)
  Receive Date: 20110325
  Receipt Date: 20100301
  Transmission Date: 20110831
  Serious: No
  Sender: FDA-Public Use
  Company Number: US-MYLANLABS-2010S1002334

PATIENT
  Age: 66 Year
  Sex: Male
  Weight: 90.72 kg

DRUGS (2)
  1. LOTENSIN [Concomitant]
     Indication: BLOOD PRESSURE INCREASED
  2. FENTANYL-100 [Suspect]
     Indication: ARTHRALGIA
     Dosage: Q72HR
     Route: 062
     Dates: start: 20100209, end: 20100210

REACTIONS (5)
  - PALPITATIONS [None]
  - DRUG ADMINISTERED AT INAPPROPRIATE SITE [None]
  - DRUG EFFECT INCREASED [None]
  - SOMNOLENCE [None]
  - FATIGUE [None]
